FAERS Safety Report 22088480 (Version 1)
Quarter: 2023Q1

REPORT INFORMATION
  Report Type: Other
  Country: PK (occurrence: None)
  Receive Date: 20230313
  Receipt Date: 20230313
  Transmission Date: 20230418
  Serious: Yes (Death)
  Sender: FDA-Public Use
  Company Number: PK-ROCHE-3305823

PATIENT
  Age: 56 Year
  Sex: Female

DRUGS (1)
  1. AVASTIN [Suspect]
     Active Substance: BEVACIZUMAB
     Indication: Ovarian cancer
     Dosage: NO
     Route: 042
     Dates: start: 20220621, end: 20221228

REACTIONS (2)
  - Gastrointestinal infection [Fatal]
  - Asthenia [Unknown]

NARRATIVE: CASE EVENT DATE: 20221228
